FAERS Safety Report 19063256 (Version 2)
Quarter: 2022Q3

REPORT INFORMATION
  Report Type: Spontaneous
  Country: US (occurrence: US)
  Receive Date: 20210326
  Receipt Date: 20220928
  Transmission Date: 20221026
  Serious: Yes (Other)
  Sender: FDA-Public Use
  Company Number: US-SA-SAC20210323001249

PATIENT
  Age: 68 Year
  Sex: Male

DRUGS (2)
  1. ZANTAC [Suspect]
     Active Substance: RANITIDINE HYDROCHLORIDE
     Indication: Dyspepsia
     Dosage: 75 MG,FREQUENCY OTHER
     Dates: start: 199601
  2. ZANTAC [Suspect]
     Active Substance: RANITIDINE HYDROCHLORIDE
     Dosage: 150MG,FREQUENCY OTHER
     Dates: end: 201909

REACTIONS (3)
  - Bladder cancer [Unknown]
  - Prostate cancer [Unknown]
  - Hodgkin^s disease [Unknown]

NARRATIVE: CASE EVENT DATE: 20070101
